FAERS Safety Report 6693250-5 (Version None)
Quarter: 2010Q2

REPORT INFORMATION
  Report Type: 
  Country: None (occurrence: None)
  Receive Date: 20100421
  Receipt Date: 20100421
  Transmission Date: 20101027
  Serious: Yes (Other)
  Sender: FDA-Public Use
  Company Number: None

PATIENT
  Sex: Female

DRUGS (2)
  1. POLYTRIM [Suspect]
     Indication: KERATOMILEUSIS
     Dosage: 1 DROP FOUR TIMES PER DAY OPHTHALMIC
     Route: 047
     Dates: start: 20100413, end: 20100419
  2. POLYTRIM [Suspect]
     Indication: PREMEDICATION
     Dosage: 1 DROP FOUR TIMES PER DAY OPHTHALMIC
     Route: 047
     Dates: start: 20100413, end: 20100419

REACTIONS (3)
  - EYE PRURITUS [None]
  - OCULAR HYPERAEMIA [None]
  - PURULENT DISCHARGE [None]
